FAERS Safety Report 7643180 (Version 3)
Quarter: 2013Q2

REPORT INFORMATION
  Report Type: Spontaneous
  Country: BR (occurrence: BR)
  Receive Date: 20101027
  Receipt Date: 20130521
  Transmission Date: 20140414
  Serious: Yes (Other)
  Sender: FDA-Public Use
  Company Number: BR-ROCHE-730600

PATIENT
  Age: 37 Year
  Sex: Female
  Weight: 84 kg

DRUGS (7)
  1. RIVOTRIL [Suspect]
     Indication: NERVOUSNESS
     Route: 048
  2. RIVOTRIL [Suspect]
     Dosage: OTHER INDICATION: ANXIETY DISORDER
     Route: 048
  3. RIVOTRIL [Suspect]
     Route: 048
  4. LEVOMEPROMAZINE [Suspect]
     Indication: INSOMNIA
     Dosage: OTHER INDICATION: ANXIETY DISORDER
     Route: 048
  5. LEVOMEPROMAZINE [Suspect]
     Route: 048
  6. HALDOL [Concomitant]
     Indication: INSOMNIA
     Route: 048
  7. PROZEN [Concomitant]
     Indication: ANXIETY DISORDER
     Route: 048

REACTIONS (16)
  - Infarction [Recovering/Resolving]
  - Drug ineffective [Unknown]
  - Dizziness [Not Recovered/Not Resolved]
  - Tremor [Not Recovered/Not Resolved]
  - Headache [Not Recovered/Not Resolved]
  - Nausea [Not Recovered/Not Resolved]
  - Pruritus [Not Recovered/Not Resolved]
  - Insomnia [Not Recovered/Not Resolved]
  - Therapeutic response decreased [Not Recovered/Not Resolved]
  - Increased appetite [Not Recovered/Not Resolved]
  - Swelling [Not Recovered/Not Resolved]
  - Weight increased [Not Recovered/Not Resolved]
  - Chest pain [Not Recovered/Not Resolved]
  - Weight loss poor [Not Recovered/Not Resolved]
  - Headache [Unknown]
  - Fatigue [Unknown]
